FAERS Safety Report 15084876 (Version 2)
Quarter: 2018Q3

REPORT INFORMATION
  Report Type: Report from Study
  Country: US (occurrence: US)
  Receive Date: 20180628
  Receipt Date: 20180702
  Transmission Date: 20181010
  Serious: No
  Sender: FDA-Public Use
  Company Number: PHEH2014US006314

PATIENT
  Age: 56 Year
  Sex: Female

DRUGS (2)
  1. GILENYA [Suspect]
     Active Substance: FINGOLIMOD HYDROCHLORIDE
     Dosage: 0.5 MG, QD
     Route: 048
     Dates: start: 20111229
  2. GILENYA [Suspect]
     Active Substance: FINGOLIMOD HYDROCHLORIDE
     Indication: RELAPSING-REMITTING MULTIPLE SCLEROSIS
     Dosage: UNK
     Route: 048
     Dates: start: 201104

REACTIONS (11)
  - Visual impairment [Recovered/Resolved]
  - Cognitive disorder [Unknown]
  - Central nervous system lesion [Recovering/Resolving]
  - General physical health deterioration [Not Recovered/Not Resolved]
  - Chest discomfort [Recovered/Resolved]
  - Dysstasia [Unknown]
  - Fall [Recovered/Resolved]
  - Band sensation [Recovered/Resolved]
  - Memory impairment [Unknown]
  - Speech disorder [Recovered/Resolved]
  - Gait disturbance [Unknown]

NARRATIVE: CASE EVENT DATE: 201307
